FAERS Safety Report 18034865 (Version 6)
Quarter: 2022Q1

REPORT INFORMATION
  Report Type: Report from Study
  Country: NL (occurrence: NL)
  Receive Date: 20200716
  Receipt Date: 20220214
  Transmission Date: 20220424
  Serious: Yes (Other)
  Sender: FDA-Public Use
  Company Number: NL-ABBVIE-20K-114-3473004-00

PATIENT
  Sex: Male

DRUGS (11)
  1. CARBIDOPA\LEVODOPA [Suspect]
     Active Substance: CARBIDOPA\LEVODOPA
     Indication: Parkinson^s disease
     Dosage: MD 7.5 CD 2.7 ED 1.0
     Route: 050
     Dates: start: 20200615, end: 2020
  2. CARBIDOPA\LEVODOPA [Suspect]
     Active Substance: CARBIDOPA\LEVODOPA
     Dosage: MD 7.0 CD 2.6 ED 3.0
     Route: 050
     Dates: start: 2020, end: 2020
  3. CARBIDOPA\LEVODOPA [Suspect]
     Active Substance: CARBIDOPA\LEVODOPA
     Dosage: MD: 8.0ML, CD: 2.5 ML/H, ED: 1.0ML
     Route: 050
     Dates: start: 2020, end: 2020
  4. CARBIDOPA\LEVODOPA [Suspect]
     Active Substance: CARBIDOPA\LEVODOPA
     Dosage: MD 7.5 CD 2.7   MD: 7.5ML CD: 2.7ML/H
     Route: 050
     Dates: start: 2020, end: 2020
  5. CARBIDOPA\LEVODOPA [Suspect]
     Active Substance: CARBIDOPA\LEVODOPA
     Dosage: MD: 7.0ML; CD: 2.6ML/H
     Route: 050
     Dates: start: 2020, end: 2020
  6. CARBIDOPA\LEVODOPA [Suspect]
     Active Substance: CARBIDOPA\LEVODOPA
     Dosage: MD: 7.0ML CD: 2.6ML/H; ED: 3.0ML
     Route: 050
     Dates: start: 2020, end: 2020
  7. CARBIDOPA\LEVODOPA [Suspect]
     Active Substance: CARBIDOPA\LEVODOPA
     Dosage: MD 7.0 CD 2.3ML/H, ED 3.0
     Route: 050
     Dates: start: 2020
  8. CARBIDOPA\LEVODOPA [Suspect]
     Active Substance: CARBIDOPA\LEVODOPA
     Dosage: MD 7.0 ML CD 2.6 ML/H ED 3.0 ML
     Route: 050
  9. CLONAZEPAM [Concomitant]
     Active Substance: CLONAZEPAM
     Indication: Hallucination
  10. RIVASTIGMINE [Concomitant]
     Active Substance: RIVASTIGMINE
     Indication: Hallucination
     Route: 062
  11. POLYETHYLENE GLYCOLS [Concomitant]
     Active Substance: POLYETHYLENE GLYCOLS
     Indication: Bowel movement irregularity

REACTIONS (17)
  - Perforation [Not Recovered/Not Resolved]
  - Epistaxis [Not Recovered/Not Resolved]
  - Device breakage [Unknown]
  - Device leakage [Unknown]
  - Device difficult to use [Unknown]
  - General physical health deterioration [Not Recovered/Not Resolved]
  - Muscle rigidity [Recovering/Resolving]
  - Appetite disorder [Not Recovered/Not Resolved]
  - Tremor [Not Recovered/Not Resolved]
  - Weight decreased [Not Recovered/Not Resolved]
  - Syncope [Not Recovered/Not Resolved]
  - Hypotension [Not Recovered/Not Resolved]
  - Freezing phenomenon [Recovering/Resolving]
  - On and off phenomenon [Unknown]
  - Dyskinesia [Recovering/Resolving]
  - Therapeutic product effect incomplete [Not Recovered/Not Resolved]
  - Parkinson^s disease [Not Recovered/Not Resolved]

NARRATIVE: CASE EVENT DATE: 20200101
